FAERS Safety Report 6674550-1 (Version None)
Quarter: 2010Q2

REPORT INFORMATION
  Report Type: 
  Country: None (occurrence: None)
  Receive Date: 20100409
  Receipt Date: 20100401
  Transmission Date: 20101027
  Serious: Yes (Other)
  Sender: FDA-Public Use
  Company Number: BR-ASTRAZENECA-2010SE14937

PATIENT
  Age: 39 Year
  Sex: Male
  Weight: 100 kg

DRUGS (6)
  1. ATENOL [Suspect]
     Indication: ARRHYTHMIA
     Route: 048
     Dates: start: 20090601
  2. CRESTOR [Suspect]
     Indication: HYPERCHOLESTEROLAEMIA
     Route: 048
     Dates: start: 20080101
  3. ATACAND [Concomitant]
     Indication: HYPERTENSION
     Route: 048
     Dates: start: 20090601
  4. LIPLESS [Concomitant]
     Indication: HYPERCHOLESTEROLAEMIA
     Dosage: OD
     Route: 048
     Dates: start: 20080101, end: 20100301
  5. PLAVIX [Concomitant]
     Indication: ANTICOAGULANT THERAPY
     Route: 048
     Dates: start: 20090601
  6. SOMALGIN [Concomitant]
     Indication: ANTICOAGULANT THERAPY
     Route: 048
     Dates: start: 20090601

REACTIONS (4)
  - BLOOD CHOLESTEROL ABNORMAL [None]
  - DRUG INEFFECTIVE [None]
  - HEART RATE IRREGULAR [None]
  - INFARCTION [None]
